FAERS Safety Report 14267639 (Version 1)
Quarter: 2017Q4

REPORT INFORMATION
  Report Type: Spontaneous
  Country: TT (occurrence: TT)
  Receive Date: 20171210
  Receipt Date: 20171210
  Transmission Date: 20180321
  Serious: Yes (Disabling)
  Sender: FDA-Public Use
  Company Number: None

PATIENT
  Age: 36 Year
  Sex: Male

DRUGS (2)
  1. DERMOVATE [Suspect]
     Active Substance: CLOBETASOL
     Indication: DERMATITIS ATOPIC
     Route: 061
  2. SEVEN SEAS VITAMINS [Concomitant]

REACTIONS (4)
  - Scab [None]
  - Dry skin [None]
  - Secretion discharge [None]
  - Rash [None]

NARRATIVE: CASE EVENT DATE: 20110910
